FAERS Safety Report 20875090 (Version 2)
Quarter: 2022Q2

REPORT INFORMATION
  Report Type: Spontaneous
  Country: TR (occurrence: TR)
  Receive Date: 20220526
  Receipt Date: 20220609
  Transmission Date: 20220721
  Serious: Yes (Other)
  Sender: FDA-Public Use
  Company Number: TR-TEVA-2022-TR-2039221

PATIENT
  Age: 88 Year
  Sex: Female

DRUGS (1)
  1. METHOTREXATE [Suspect]
     Active Substance: METHOTREXATE
     Indication: Pemphigoid
     Route: 065
     Dates: start: 2021

REACTIONS (1)
  - COVID-19 [Recovered/Resolved]
